FAERS Safety Report 12994288 (Version 1)
Quarter: 2016Q4

REPORT INFORMATION
  Report Type: Spontaneous
  Country: US (occurrence: US)
  Receive Date: 20161202
  Receipt Date: 20161202
  Transmission Date: 20170207
  Serious: Yes (Hospitalization)
  Sender: FDA-Public Use
  Company Number: None

PATIENT
  Age: 15 Year
  Sex: Female
  Weight: 61.05 kg

DRUGS (13)
  1. NEOSTIGMINE [Concomitant]
     Active Substance: NEOSTIGMINE
  2. LEVSIN [Concomitant]
     Active Substance: HYOSCYAMINE SULFATE
  3. DEXAMETHASONE. [Concomitant]
     Active Substance: DEXAMETHASONE
  4. CEFOXLTIN [Concomitant]
  5. HYDROMORPHONE [Concomitant]
     Active Substance: HYDROMORPHONE
  6. RESLIZUMAB 10 MG/ML [Suspect]
     Active Substance: RESLIZUMAB
     Indication: EOSINOPHILIC OESOPHAGITIS
     Dosage: 2 MG./ML EVERY 4 WEEKS INTRAVENOUS
     Route: 042
     Dates: start: 20161010
  7. ALBUTEROL. [Concomitant]
     Active Substance: ALBUTEROL
  8. ROCURONMNIUM [Concomitant]
  9. KENALOG [Concomitant]
     Active Substance: TRIAMCINOLONE ACETONIDE
  10. LIDOCAINE. [Concomitant]
     Active Substance: LIDOCAINE
  11. LORATADINE. [Concomitant]
     Active Substance: LORATADINE
  12. GENERAL ANESTHESIA [Suspect]
     Active Substance: UNSPECIFIED INGREDIENT
  13. FENTANYL. [Concomitant]
     Active Substance: FENTANYL

REACTIONS (2)
  - Nausea [None]
  - Vomiting [None]

NARRATIVE: CASE EVENT DATE: 20161104
